FAERS Safety Report 9511716 (Version 1)
Quarter: 2013Q3

REPORT INFORMATION
  Report Type: Spontaneous
  Country: CN (occurrence: None)
  Receive Date: 20130906
  Receipt Date: 20130906
  Transmission Date: 20140515
  Serious: Yes (Death)
  Sender: FDA-Public Use
  Company Number: B0920526A

PATIENT
  Age: 64 Year
  Sex: Male

DRUGS (4)
  1. CEFUROXIME SODIUM [Suspect]
     Indication: COUGH
     Dosage: 4.5 GM INTRAVENOUS INFUSION
  2. ETHANOL (FORMULATION UNKNOWN) (ALCOHOL) [Suspect]
     Route: 048
  3. DEXTROSE [Concomitant]
  4. SODIUM CHLORIDE [Concomitant]

REACTIONS (12)
  - Flushing [None]
  - Hyperhidrosis [None]
  - Asthenia [None]
  - Dyspnoea [None]
  - Loss of consciousness [None]
  - Arteriosclerosis coronary artery [None]
  - Coronary artery stenosis [None]
  - Blood ethanol increased [None]
  - Alcohol intolerance [None]
  - Alcohol interaction [None]
  - Sudden death [None]
  - Infusion site reaction [None]
